FAERS Safety Report 14213713 (Version 1)
Quarter: 2017Q4

REPORT INFORMATION
  Report Type: Spontaneous
  Country: US (occurrence: US)
  Receive Date: 20171122
  Receipt Date: 20171122
  Transmission Date: 20180321
  Serious: Yes (Hospitalization)
  Sender: FDA-Public Use
  Company Number: US-ROCHE-2023685

PATIENT
  Age: 40 Year
  Sex: Female

DRUGS (6)
  1. CARBOPLATIN. [Concomitant]
     Active Substance: CARBOPLATIN
     Indication: HER-2 POSITIVE BREAST CANCER
     Dosage: CYCLE 1 THROUGH 4
     Route: 065
  2. TAXOTERE [Concomitant]
     Active Substance: DOCETAXEL
     Indication: HER-2 POSITIVE BREAST CANCER
     Dosage: CYCLE 1 THROUGH 4
     Route: 065
  3. PERJETA [Suspect]
     Active Substance: PERTUZUMAB
     Indication: HER-2 POSITIVE BREAST CANCER
     Dosage: STOPPED DURING THE 5TH CYCLE
     Route: 065
  4. CARBOPLATIN. [Concomitant]
     Active Substance: CARBOPLATIN
     Dosage: DOSAGE DECREASED BY 50% FOR THE 5TH CYCLE
     Route: 065
  5. TAXOTERE [Concomitant]
     Active Substance: DOCETAXEL
     Dosage: DECREASE DOSE BY 50% FOR THE 5TH CYCLE
     Route: 065
  6. HERCEPTIN [Suspect]
     Active Substance: TRASTUZUMAB
     Indication: HER-2 POSITIVE BREAST CANCER
     Dosage: STOPPED DURING THE 5TH CYCLE
     Route: 065

REACTIONS (4)
  - Diarrhoea [Unknown]
  - Dehydration [Unknown]
  - Renal disorder [Recovered/Resolved]
  - Renal failure [Unknown]
